FAERS Safety Report 11664117 (Version 1)
Quarter: 2015Q4

REPORT INFORMATION
  Report Type: Spontaneous
  Country: US (occurrence: US)
  Receive Date: 20151027
  Receipt Date: 20151027
  Transmission Date: 20160304
  Serious: Yes (Hospitalization)
  Sender: FDA-Public Use
  Company Number: US-UNITED THERAPEUTICS-UNT-2015-013201

PATIENT
  Sex: Female

DRUGS (1)
  1. ORENITRAM [Suspect]
     Active Substance: TREPROSTINIL
     Indication: PRODUCT USED FOR UNKNOWN INDICATION
     Dosage: 0.625 MG, TID
     Route: 048
     Dates: start: 20151001

REACTIONS (5)
  - Transfusion [Unknown]
  - Nausea [Unknown]
  - Malaise [Unknown]
  - Oedema [Unknown]
  - Vomiting [Unknown]

NARRATIVE: CASE EVENT DATE: 20151001
